FAERS Safety Report 5565632-6 (Version None)
Quarter: 2007Q4

REPORT INFORMATION
  Report Type: 
  Country: None (occurrence: None)
  Receive Date: 20071218
  Receipt Date: 20071211
  Transmission Date: 20080405
  Serious: Yes (Hospitalization)
  Sender: FDA-Public Use
  Company Number: DE-BOEHRINGER INGELHEIM PHARMACEUTICALS, INC.-2007-DE-06764DE

PATIENT
  Sex: Female
  Weight: 85 kg

DRUGS (5)
  1. AGGRENOX [Suspect]
     Indication: PROPHYLAXIS
     Dosage: STRENGTH 200MG/25MG - DAILY DOSE 400MG/50MG
     Route: 048
  2. RAMIPRIL [Concomitant]
     Indication: HYPERTENSION
     Route: 048
     Dates: start: 20070912
  3. COVERSUM COMBI [Concomitant]
     Indication: HYPERTENSION
     Dosage: STRENGTH 4MG/1,25MG; DAILY DOSE 4MG/1,25MG
     Route: 048
     Dates: start: 20070912
  4. GLIMEPIRIDE [Concomitant]
     Indication: DIABETES MELLITUS
     Route: 048
     Dates: start: 20070912
  5. SIMVAHEXAL [Concomitant]
     Indication: HYPERLIPIDAEMIA
     Route: 048
     Dates: start: 20071121

REACTIONS (1)
  - CEREBROVASCULAR ACCIDENT [None]
